FAERS Safety Report 9449991 (Version 1)
Quarter: 2013Q3

REPORT INFORMATION
  Report Type: Spontaneous
  Country: DE (occurrence: DE)
  Receive Date: 20130809
  Receipt Date: 20130809
  Transmission Date: 20140515
  Serious: Yes (Life-Threatening, Hospitalization)
  Sender: FDA-Public Use
  Company Number: DE-ASTRAZENECA-2013SE62158

PATIENT
  Age: 75 Year
  Sex: Male
  Weight: 66 kg

DRUGS (5)
  1. CRESTOR [Suspect]
     Indication: HYPERCHOLESTEROLAEMIA
     Route: 048
     Dates: end: 20121213
  2. METOPROLOL [Concomitant]
     Indication: CORONARY ARTERY DISEASE
  3. KINZALKOMB [Concomitant]
     Indication: HYPERTENSION
     Dosage: 80/12.5 MG 1 DF
     Route: 048
  4. CLOPIDOGREL [Concomitant]
     Indication: CORONARY ARTERY DISEASE
     Route: 048
  5. TAMSULOSIN HYDROCHLORIDE [Concomitant]
     Indication: PROSTATIC ADENOMA
     Route: 048

REACTIONS (6)
  - Vomiting [Not Recovered/Not Resolved]
  - Diarrhoea [Not Recovered/Not Resolved]
  - Cardiovascular disorder [Not Recovered/Not Resolved]
  - Circulatory collapse [Unknown]
  - Nausea [Not Recovered/Not Resolved]
  - Rhabdomyolysis [Not Recovered/Not Resolved]
